FAERS Safety Report 8262759-5 (Version None)
Quarter: 2012Q2

REPORT INFORMATION
  Report Type: 
  Country: None (occurrence: None)
  Receive Date: 20120405
  Receipt Date: 20120330
  Transmission Date: 20120825
  Serious: No
  Sender: FDA-Public Use
  Company Number: US-BAYER-2012-033168

PATIENT
  Age: 77 Year
  Sex: Male
  Weight: 59 kg

DRUGS (3)
  1. ALEVE (CAPLET) [Suspect]
     Indication: ANALGESIC THERAPY
     Dosage: 1 UNIT USED ONLY ONE TIME
     Route: 048
     Dates: start: 20120328, end: 20120328
  2. ANTIBIOTICS [Concomitant]
  3. DIABETIC MEDICATION [Concomitant]

REACTIONS (1)
  - CONSTIPATION [None]
